FAERS Safety Report 4775151-2 (Version None)
Quarter: 2005Q3

REPORT INFORMATION
  Report Type: 
  Country: None (occurrence: None)
  Receive Date: 20050920
  Receipt Date: 20050906
  Transmission Date: 20060218
  Serious: Yes (Hospitalization)
  Sender: FDA-Public Use
  Company Number: US-2005-018880

PATIENT
  Age: 53 Year
  Sex: Female

DRUGS (3)
  1. LEUKINE [Suspect]
     Indication: METASTATIC MALIGNANT MELANOMA
     Dosage: 250 ?G/M2, 1X/DAY ON D6 9, SUBCUTANEOUS
     Route: 058
     Dates: start: 20050719, end: 20050801
  2. THALIDOMIDE (THALIDOMIDE) [Suspect]
     Indication: METASTATIC MALIGNANT MELANOMA
     Dosage: 100 MG , 1X/DAY, ORAL
     Route: 048
     Dates: start: 20050714, end: 20050801
  3. TEMOZOLOMID E9TEMOZOLOMIDE) [Suspect]
     Indication: METASTATIC MALIGNANT MELANOMA
     Dosage: 150 MG/M2, 1D/DAY D1-5, ORAL
     Route: 048
     Dates: start: 20050714, end: 20050801

REACTIONS (3)
  - AGGRESSION [None]
  - CONFUSIONAL STATE [None]
  - DISORIENTATION [None]
